FAERS Safety Report 24077295 (Version 1)
Quarter: 2024Q3

REPORT INFORMATION
  Report Type: Spontaneous
  Country: JP (occurrence: JP)
  Receive Date: 20240711
  Receipt Date: 20240711
  Transmission Date: 20241017
  Serious: No
  Sender: PIERRE FABRE MEDICAMENT
  Company Number: JP-PFM-2023-04870

PATIENT
  Age: 5 Month
  Sex: Male

DRUGS (4)
  1. PROPRANOLOL [Suspect]
     Active Substance: PROPRANOLOL HYDROCHLORIDE
     Indication: Stenosis
     Dosage: UNK
     Route: 065
  2. PROPRANOLOL [Suspect]
     Active Substance: PROPRANOLOL HYDROCHLORIDE
     Indication: Off label use
     Dosage: 1.9 MG/KG/DAY (AT AGE OF 6 YEARS)
     Route: 065
  3. CIFENLINE [Concomitant]
     Active Substance: CIFENLINE
     Indication: Stenosis
     Dosage: 1.0 MG/KG/DAY (AT AGE 19 MONTHS)
     Route: 048
  4. CIFENLINE [Concomitant]
     Active Substance: CIFENLINE
     Dosage: 3.1 MG/KG/DAY (AT AGE 6 YEARS)
     Route: 065

REACTIONS (3)
  - Product use issue [Unknown]
  - Product use in unapproved indication [Unknown]
  - Off label use [Unknown]
